FAERS Safety Report 25103575 (Version 1)
Quarter: 2025Q1

REPORT INFORMATION
  Report Type: Spontaneous
  Country: GB (occurrence: GB)
  Receive Date: 20250321
  Receipt Date: 20250321
  Transmission Date: 20250409
  Serious: Yes (Life-Threatening, Other)
  Sender: AUROBINDO
  Company Number: GB-MHRA-MED-202503051416537500-KYVLM

PATIENT
  Age: 58 Year
  Sex: Male

DRUGS (3)
  1. METFORMIN [Suspect]
     Active Substance: METFORMIN HYDROCHLORIDE
     Indication: Product used for unknown indication
     Route: 065
  2. EMPAGLIFLOZIN AND METFORMIN HYDROCHLORIDE [Suspect]
     Active Substance: EMPAGLIFLOZIN\METFORMIN HYDROCHLORIDE
     Indication: Product used for unknown indication
     Route: 065
  3. TRULICITY [Concomitant]
     Active Substance: DULAGLUTIDE
     Indication: Product used for unknown indication
     Route: 065

REACTIONS (4)
  - Confusional state [Unknown]
  - Influenza [Unknown]
  - Malaise [Unknown]
  - Diabetic ketoacidosis [Recovering/Resolving]

NARRATIVE: CASE EVENT DATE: 20250301
